FAERS Safety Report 4836727-7 (Version None)
Quarter: 2005Q4

REPORT INFORMATION
  Report Type: 
  Country: None (occurrence: None)
  Receive Date: 20051123
  Receipt Date: 20051018
  Transmission Date: 20060501
  Serious: Yes (Hospitalization)
  Sender: FDA-Public Use
  Company Number: US-ABBOTT-05P-163-0314411-00

PATIENT
  Sex: Female
  Weight: 93 kg

DRUGS (6)
  1. SYNTHROID [Suspect]
     Indication: HORMONE REPLACEMENT THERAPY
     Route: 048
     Dates: start: 19980101
  2. SYNTHROID [Suspect]
     Route: 048
     Dates: start: 19970101, end: 19980101
  3. BENACAR [Concomitant]
     Indication: BLOOD PRESSURE INCREASED
     Route: 048
     Dates: start: 20050601, end: 20050701
  4. BENACAR [Concomitant]
     Route: 048
     Dates: start: 20050701
  5. BENACAR [Concomitant]
     Route: 048
  6. ACETAMINOPHEN [Concomitant]
     Indication: HEADACHE
     Route: 048

REACTIONS (9)
  - ALOPECIA [None]
  - CHEST PAIN [None]
  - DRY SKIN [None]
  - GASTROOESOPHAGEAL REFLUX DISEASE [None]
  - HEADACHE [None]
  - PALPITATIONS [None]
  - TINNITUS [None]
  - VENTRICULAR EXTRASYSTOLES [None]
  - WEIGHT INCREASED [None]
